FAERS Safety Report 8343250-4 (Version None)
Quarter: 2012Q2

REPORT INFORMATION
  Report Type: 
  Country: None (occurrence: None)
  Receive Date: 20120503
  Receipt Date: 20120420
  Transmission Date: 20120825
  Serious: Yes (Other)
  Sender: FDA-Public Use
  Company Number: DSA_56318_2012

PATIENT
  Sex: Male

DRUGS (62)
  1. IZOFRAN [Concomitant]
  2. VIOXX [Concomitant]
  3. NAVELBINE [Concomitant]
  4. CHLORHEXIDINE GLUCONATE [Concomitant]
  5. MULTI-VITAMIN [Concomitant]
  6. CYTOXAN [Concomitant]
  7. RITUXAN [Concomitant]
  8. COUMADIN [Concomitant]
  9. IBUPROFEN [Concomitant]
  10. ATIVAN [Concomitant]
  11. WARFARIN SODIUM [Concomitant]
  12. PEPCID [Concomitant]
  13. CHANTIX [Concomitant]
  14. POLYMYXIN B SULFATE W/TRIMETHOPRIM SULFATE [Concomitant]
  15. TYLENOL REGULAR [Concomitant]
  16. HYDROXYZINE [Concomitant]
  17. CHONDROITIN [Concomitant]
  18. MULTI-VITAMINS [Concomitant]
  19. ZOMETA [Concomitant]
  20. AREDIA [Concomitant]
  21. ALBUTEROL [Concomitant]
  22. DARVOCET-N 50 [Concomitant]
  23. ATARAX [Concomitant]
  24. NEUPOGEN [Concomitant]
  25. METOCLOPRAMIDE [Concomitant]
  26. GEMCITABINE [Concomitant]
  27. INTERFERON [Concomitant]
  28. ARISTOCORT A [Concomitant]
  29. RANITIDINE [Concomitant]
  30. ACYCLOVIR [Concomitant]
  31. TAMOXIFEN CITRATE [Concomitant]
  32. NAPROXEN [Concomitant]
  33. CISPLATIN [Concomitant]
  34. FLONASE [Concomitant]
  35. SULFAMETHOXYPYRAZINE/TRIMETHOPRIM [Concomitant]
  36. FLUCONAZOLE [Concomitant]
  37. BECONASE [Concomitant]
  38. DEMEROL [Concomitant]
  39. ACTIVASE [Concomitant]
  40. DESFERAL [Concomitant]
  41. TAXOL [Concomitant]
  42. TAXOTERE [Concomitant]
  43. VENTOLIN [Concomitant]
  44. ZITHROMAX [Concomitant]
  45. BENADRYL [Concomitant]
  46. HABITROL [Concomitant]
  47. CLARITIN [Concomitant]
  48. AMPHOTERICIN B [Concomitant]
  49. HEPARIN [Concomitant]
  50. PERIDEX [Concomitant]
  51. DOXIL [Concomitant]
  52. ELIDEL [Suspect]
     Indication: ECZEMA
     Dosage: 30 G, FREQUENCY UNKNOWN TOPICAL), DF
     Route: 061
     Dates: start: 20010101
  53. ELIDEL [Suspect]
     Indication: ECZEMA
     Dosage: 30 G, FREQUENCY UNKNOWN TOPICAL), DF
     Route: 061
     Dates: start: 20050101
  54. HYDROCODONE BITARTRATE [Concomitant]
  55. DEPO-MEDROL [Concomitant]
  56. CODEINE SULFATE [Concomitant]
  57. RESTORIL [Concomitant]
  58. BEXTRA [Concomitant]
  59. CARBOPLATIN [Concomitant]
  60. FLUDARABINE PHOSPHATE [Concomitant]
  61. TETRACYCLINE [Concomitant]
  62. KETOCONAZOLE [Concomitant]

REACTIONS (59)
  - MULTIPLE MYELOMA [None]
  - HEPATIC STEATOSIS [None]
  - VITREOUS FLOATERS [None]
  - FOLLICULITIS [None]
  - FATIGUE [None]
  - PRESBYOPIA [None]
  - FUNGAL INFECTION [None]
  - PANCYTOPENIA [None]
  - CATARACT [None]
  - SLEEP DISORDER [None]
  - RASH PRURITIC [None]
  - DERMATITIS CONTACT [None]
  - PYREXIA [None]
  - HYPERGLYCAEMIA [None]
  - HYPOTHYROIDISM [None]
  - ARTHRITIS [None]
  - DRUG INEFFECTIVE [None]
  - PHARYNGITIS [None]
  - HERPES ZOSTER [None]
  - CATARACT OPERATION [None]
  - HAEMORRHAGE [None]
  - DEPRESSION [None]
  - WEIGHT DECREASED [None]
  - SCRATCH [None]
  - SEBORRHOEIC DERMATITIS [None]
  - DERMATITIS ATOPIC [None]
  - PHOTOPSIA [None]
  - INCREASED APPETITE [None]
  - BACTERIAL INFECTION [None]
  - ERYTHEMA [None]
  - ROSACEA [None]
  - HYPERLIPIDAEMIA [None]
  - NAUSEA [None]
  - ARTHRALGIA [None]
  - BONE NEOPLASM MALIGNANT [None]
  - HYPERMETROPIA [None]
  - PROCEDURAL COMPLICATION [None]
  - TYPE 2 DIABETES MELLITUS [None]
  - RASH PAPULAR [None]
  - VENTRICULAR HYPERTROPHY [None]
  - DEVICE RELATED INFECTION [None]
  - STAPHYLOCOCCAL BACTERAEMIA [None]
  - NEUROPATHY PERIPHERAL [None]
  - EYE PAIN [None]
  - DYSPNOEA [None]
  - APATHY [None]
  - MUSCULOSKELETAL DISORDER [None]
  - GASTROINTESTINAL TOXICITY [None]
  - GLAUCOMA [None]
  - DRY EYE [None]
  - INSOMNIA [None]
  - VOMITING [None]
  - ROTATOR CUFF SYNDROME [None]
  - BLOOD CULTURE POSITIVE [None]
  - BRONCHITIS [None]
  - PAIN [None]
  - STOMATITIS [None]
  - ASTIGMATISM [None]
  - PNEUMONIA [None]
